FAERS Safety Report 8997068 (Version 2)
Quarter: 2013Q4

REPORT INFORMATION
  Report Type: Spontaneous
  Country: GB (occurrence: GB)
  Receive Date: 20130104
  Receipt Date: 20131010
  Transmission Date: 20140711
  Serious: Yes (Other)
  Sender: FDA-Public Use
  Company Number: GB-TEVA-378256ISR

PATIENT
  Age: 71 Year
  Sex: Male
  Weight: 80 kg

DRUGS (5)
  1. AMIODARONE [Suspect]
     Indication: ATRIAL FIBRILLATION
     Route: 048
     Dates: start: 201108, end: 201203
  2. WARFARIN [Concomitant]
  3. BISOPROLOL [Concomitant]
  4. RAMIPRIL [Concomitant]
  5. ROSUVASTATIN [Concomitant]

REACTIONS (3)
  - Interstitial lung disease [Recovered/Resolved with Sequelae]
  - Rash [Recovered/Resolved]
  - Lacrimation increased [Not Recovered/Not Resolved]
